FAERS Safety Report 5728398-2 (Version None)
Quarter: 2008Q2

REPORT INFORMATION
  Report Type: 
  Country: None (occurrence: None)
  Receive Date: 20080506
  Receipt Date: 20080501
  Transmission Date: 20081010
  Serious: Yes (Life-Threatening, Hospitalization, Other)
  Sender: FDA-Public Use
  Company Number: PHBS2008US04398

PATIENT
  Age: 54 Year
  Sex: Female

DRUGS (1)
  1. LIORESAL [Suspect]
     Indication: MUSCLE SPASTICITY
     Route: 037

REACTIONS (6)
  - ABASIA [None]
  - AMNESIA [None]
  - COGNITIVE DISORDER [None]
  - MALAISE [None]
  - SEDATION [None]
  - WITHDRAWAL SYNDROME [None]
